FAERS Safety Report 13924760 (Version 2)
Quarter: 2017Q3

REPORT INFORMATION
  Report Type: Spontaneous
  Country: AU (occurrence: AU)
  Receive Date: 20170831
  Receipt Date: 20170926
  Transmission Date: 20171127
  Serious: No
  Sender: FDA-Public Use
  Company Number: AU-ABBVIE-17K-008-2086859-00

PATIENT
  Sex: Female

DRUGS (1)
  1. HUMIRA [Suspect]
     Active Substance: ADALIMUMAB
     Indication: CROHN^S DISEASE
     Route: 058
     Dates: start: 20170730

REACTIONS (1)
  - Arthralgia [Recovering/Resolving]

NARRATIVE: CASE EVENT DATE: 201708
